FAERS Safety Report 13950099 (Version 1)
Quarter: 2017Q3

REPORT INFORMATION
  Report Type: Spontaneous
  Country: US (occurrence: US)
  Receive Date: 20170908
  Receipt Date: 20170908
  Transmission Date: 20171128
  Serious: No
  Sender: FDA-Public Use
  Company Number: US-ROCHE-1133718

PATIENT
  Sex: Male

DRUGS (2)
  1. CALAN [Concomitant]
     Active Substance: VERAPAMIL HYDROCHLORIDE
  2. RITUXAN [Suspect]
     Active Substance: RITUXIMAB
     Indication: NON-HODGKIN^S LYMPHOMA
     Route: 065
     Dates: start: 199705

REACTIONS (8)
  - Paraesthesia [Unknown]
  - Fall [Unknown]
  - Back pain [Unknown]
  - Dysuria [Unknown]
  - Constipation [Unknown]
  - Spinal pain [Unknown]
  - Neck pain [Unknown]
  - Spinal column injury [Unknown]
